FAERS Safety Report 7772688-9 (Version None)
Quarter: 2011Q3

REPORT INFORMATION
  Report Type: 
  Country: None (occurrence: None)
  Receive Date: 20110922
  Receipt Date: 20100803
  Transmission Date: 20111222
  Serious: No
  Sender: FDA-Public Use
  Company Number: US-ASTRAZENECA-2007UW25194

PATIENT
  Age: 602 Month
  Sex: Male
  Weight: 112.5 kg

DRUGS (23)
  1. INDERAL [Concomitant]
     Route: 048
     Dates: start: 19960409
  2. VICODIN [Concomitant]
     Indication: BACK PAIN
     Route: 048
     Dates: start: 19990527
  3. TAMOXIFEN CITRATE [Concomitant]
     Route: 048
     Dates: start: 20031126
  4. SEROQUEL [Suspect]
     Indication: BIPOLAR DISORDER
     Dosage: 25-100 MG
     Route: 048
     Dates: start: 20041002, end: 20050601
  5. SEROQUEL [Suspect]
     Dosage: 25 MG - 100 MG
     Route: 048
     Dates: start: 20041012
  6. CELEXA [Concomitant]
     Route: 048
     Dates: start: 19990527
  7. LIPITOR [Concomitant]
     Route: 048
     Dates: start: 19990527, end: 20031126
  8. SEROQUEL [Suspect]
     Indication: INSOMNIA
     Dosage: 25-100 MG
     Route: 048
     Dates: start: 20041002, end: 20050601
  9. PRANDIN [Concomitant]
     Route: 048
     Dates: start: 19990527
  10. MONOPRIL [Concomitant]
     Route: 048
     Dates: start: 20000104
  11. DILAUDIA [Concomitant]
     Route: 048
     Dates: start: 20020506
  12. THORAZINE [Concomitant]
  13. SEROQUEL [Suspect]
     Dosage: 25 MG - 100 MG
     Route: 048
     Dates: start: 20041012
  14. CELESTE [Concomitant]
     Route: 048
     Dates: start: 19960105
  15. VIOXX [Concomitant]
     Route: 048
     Dates: start: 20000215
  16. PAXIL [Concomitant]
     Route: 048
     Dates: start: 20001102
  17. ZYRTEC [Concomitant]
     Route: 048
     Dates: start: 20000207
  18. CLOZAPINE [Concomitant]
  19. SEROQUEL [Suspect]
     Indication: SLEEP DISORDER
     Dosage: 25-100 MG
     Route: 048
     Dates: start: 20041002, end: 20050601
  20. SEROQUEL [Suspect]
     Dosage: 25 MG - 100 MG
     Route: 048
     Dates: start: 20041012
  21. GLUCOTROL [Concomitant]
     Route: 048
     Dates: start: 19960105
  22. SOMA [Concomitant]
     Indication: PAIN
     Route: 048
     Dates: start: 20031105
  23. AMBIEN [Concomitant]
     Indication: INSOMNIA
     Route: 048
     Dates: start: 20020401

REACTIONS (4)
  - DIABETES MELLITUS INADEQUATE CONTROL [None]
  - ADVERSE DRUG REACTION [None]
  - DIABETES MELLITUS [None]
  - DIABETIC COMPLICATION [None]
